FAERS Safety Report 4694628-1 (Version None)
Quarter: 2005Q2

REPORT INFORMATION
  Report Type: 
  Country: None (occurrence: None)
  Receive Date: 20050617
  Receipt Date: 20050603
  Transmission Date: 20051028
  Serious: Yes (Hospitalization)
  Sender: FDA-Public Use
  Company Number: 2005BI010889

PATIENT
  Age: 53 Year
  Sex: Female

DRUGS (1)
  1. AVONEX [Suspect]
     Indication: MULTIPLE SCLEROSIS
     Dosage: 30 UG;QW; IM
     Route: 030
     Dates: start: 20010101, end: 20050323

REACTIONS (4)
  - APPENDICITIS PERFORATED [None]
  - IMPAIRED HEALING [None]
  - INCISION SITE COMPLICATION [None]
  - THROMBOSIS [None]
